FAERS Safety Report 6199821-7 (Version None)
Quarter: 2009Q2

REPORT INFORMATION
  Report Type: 
  Country: None (occurrence: None)
  Receive Date: 20090520
  Receipt Date: 20090520
  Transmission Date: 20091009
  Serious: Yes (Hospitalization)
  Sender: FDA-Public Use
  Company Number: None

PATIENT
  Sex: Male
  Weight: 65.5 kg

DRUGS (2)
  1. METHOTREXATE [Suspect]
     Dates: end: 20090316
  2. VINCRISTINE SULFATE [Suspect]
     Dates: end: 20090324

REACTIONS (7)
  - DYSARTHRIA [None]
  - FACIAL PALSY [None]
  - HEMIPLEGIA [None]
  - LEUKOENCEPHALOPATHY [None]
  - MUSCULAR WEAKNESS [None]
  - NEUROLOGICAL SYMPTOM [None]
  - PYREXIA [None]
